FAERS Safety Report 7804389-2 (Version None)
Quarter: 2011Q4

REPORT INFORMATION
  Report Type: 
  Country: None (occurrence: None)
  Receive Date: 20111010
  Receipt Date: 20110927
  Transmission Date: 20120403
  Serious: Yes (Hospitalization)
  Sender: FDA-Public Use
  Company Number: US-ELI_LILLY_AND_COMPANY-US201101006676

PATIENT
  Sex: Female

DRUGS (1)
  1. FORTEO [Suspect]
     Indication: OSTEOPOROSIS
     Dosage: 20 UG, QD
     Route: 065
     Dates: start: 20101101

REACTIONS (7)
  - INJECTION SITE PAIN [None]
  - DRUG DOSE OMISSION [None]
  - BRONCHITIS [None]
  - SOMNOLENCE [None]
  - ASTHENIA [None]
  - PNEUMONIA [None]
  - MALAISE [None]
